FAERS Safety Report 8536963-2 (Version None)
Quarter: 2012Q3

REPORT INFORMATION
  Report Type: 
  Country: None (occurrence: None)
  Receive Date: 20120725
  Receipt Date: 20120717
  Transmission Date: 20120928
  Serious: No
  Sender: FDA-Public Use
  Company Number: US-PFIZER INC-2012150785

PATIENT
  Sex: Female
  Weight: 56.689 kg

DRUGS (8)
  1. HYDROCODONE [Concomitant]
     Indication: ARTHRITIS
     Dosage: UNK MG, 2X/DAY
  2. PRILOSEC [Concomitant]
     Indication: GASTRIC DISORDER
     Dosage: 40 MG, DAILY
  3. CLEOCIN HYDROCHLORIDE [Suspect]
     Indication: PNEUMONIA
     Dosage: 300 MG, UNK
     Route: 048
  4. LEXAPRO [Concomitant]
     Indication: DEPRESSION
     Dosage: 10 MG, 2X/DAY
  5. SPIRIVA [Concomitant]
     Indication: CHRONIC OBSTRUCTIVE PULMONARY DISEASE
     Dosage: 18 MCG AT ONE PUFF OF UNKNOWN DOSE,DAILY
  6. SYMBICORT [Concomitant]
     Indication: CHRONIC OBSTRUCTIVE PULMONARY DISEASE
     Dosage: 160/4.5 MCG AT 2 PUFFS OF UNKNOWN DOSE, 2X/DAY
  7. DIOVAN [Concomitant]
     Dosage: 80 MG, DAILY
  8. DILTIAZEM [Concomitant]
     Indication: CARDIOVASCULAR DISORDER
     Dosage: 120 MG, DAILY

REACTIONS (1)
  - NO ADVERSE EVENT [None]
